FAERS Safety Report 5021626-0 (Version None)
Quarter: 2006Q2

REPORT INFORMATION
  Report Type: 
  Country: None (occurrence: None)
  Receive Date: 20060605
  Receipt Date: 20060523
  Transmission Date: 20061013
  Serious: Yes (Other)
  Sender: FDA-Public Use
  Company Number: CHPA2006US05169

PATIENT
  Age: 76 Year
  Sex: Female
  Weight: 77.1 kg

DRUGS (12)
  1. PERDIEM OVERNIGHT RELIEF PILLS (NCH) (SENNA GLYCOSIDES (CA SALTS OF P [Suspect]
     Indication: CONSTIPATION
     Dosage: 90 MG, QD, ORAL
     Route: 048
  2. ATENOLOL [Concomitant]
  3. NEURONTIN [Concomitant]
  4. PRILOSEC [Concomitant]
  5. ZANTAC [Concomitant]
  6. ASPIRIN [Concomitant]
  7. ALL OTHER THERAPEUTIC PRODUCTS (NO INGREDIENTS/SUBSTANCES) [Concomitant]
  8. CARTIA XT [Concomitant]
  9. ZETIA [Concomitant]
  10. DOXYCYCLINE ^KALBE FARMA^ (DOXYCYCLINE HYCLATE) [Concomitant]
  11. WELCHOL [Concomitant]
  12. ESTROGEL [Concomitant]

REACTIONS (6)
  - DRUG EFFECT DECREASED [None]
  - FAECES HARD [None]
  - INCORRECT DOSE ADMINISTERED [None]
  - INTENTIONAL DRUG MISUSE [None]
  - OSTEOPOROSIS [None]
  - ROSACEA [None]
